FAERS Safety Report 6593101-3 (Version None)
Quarter: 2010Q1

REPORT INFORMATION
  Report Type: 
  Country: None (occurrence: None)
  Receive Date: 20100222
  Receipt Date: 20100219
  Transmission Date: 20100710
  Serious: Yes (Hospitalization)
  Sender: FDA-Public Use
  Company Number: US-ROXANE LABORATORIES, INC.-2010-RO-00182RO

PATIENT
  Sex: Male

DRUGS (12)
  1. PREDNISONE [Suspect]
  2. FENTANYL [Suspect]
     Indication: CANCER PAIN
     Route: 062
     Dates: end: 20090501
  3. FENTANYL [Suspect]
     Route: 062
     Dates: start: 20090529
  4. DILAUDID [Suspect]
     Indication: CANCER PAIN
     Dosage: 40 MG
     Route: 048
  5. DILAUDID [Suspect]
     Route: 048
     Dates: start: 20090529
  6. ALPRAZOLAM [Suspect]
     Indication: SLEEP DISORDER
     Dosage: 0.5 MG
     Route: 048
  7. ALPRAZOLAM [Suspect]
     Indication: ANXIETY
  8. GABAPENTIN [Concomitant]
     Dosage: 300 MG
     Route: 048
  9. DOCUSATE [Concomitant]
     Dosage: 100 MG
  10. SENNA [Concomitant]
  11. CALCIUM [Concomitant]
  12. M.V.I. [Concomitant]

REACTIONS (6)
  - ANAEMIA [None]
  - BLOOD CREATINE PHOSPHOKINASE INCREASED [None]
  - DEPRESSED LEVEL OF CONSCIOUSNESS [None]
  - LIVER FUNCTION TEST ABNORMAL [None]
  - PAIN [None]
  - PLATELET COUNT DECREASED [None]
